FAERS Safety Report 8097172 (Version 2)
Quarter: 2012Q4

REPORT INFORMATION
  Report Type: 
  Country: CH (occurrence: CH)
  Receive Date: 20110819
  Receipt Date: 20120913
  Transmission Date: 20130627
  Serious: Yes (Death, Other)
  Sender: FDA-Public Use
  Company Number: CH-RANBAXY-2011R1-46924

PATIENT
  Sex: Male

DRUGS (1)
  1. CLINDAMYCIN [Suspect]
     Indication: PRODUCT USED FOR UNKNOWN INDICATION
     Dosage: UNK
     Route: 065

REACTIONS (5)
  - Aspiration [Unknown]
  - Pain [Unknown]
  - Cough [Unknown]
  - Nausea [Unknown]
  - Aphonia [Unknown]
